FAERS Safety Report 12464412 (Version 1)
Quarter: 2016Q2

REPORT INFORMATION
  Report Type: Spontaneous
  Country: FR (occurrence: FR)
  Receive Date: 20160614
  Receipt Date: 20160614
  Transmission Date: 20160815
  Serious: Yes (Hospitalization)
  Sender: FDA-Public Use
  Company Number: FR-CONCORDIA PHARMACEUTICALS INC.-CO-ZO-FR-2016-062

PATIENT
  Age: 9 Year
  Sex: Female
  Weight: 30 kg

DRUGS (5)
  1. MICROPAKINE [Concomitant]
     Active Substance: VALPROIC ACID
     Indication: MYOCLONIC EPILEPSY
     Route: 048
     Dates: start: 201602
  2. ZONEGRAN [Suspect]
     Active Substance: ZONISAMIDE
     Indication: MYOCLONIC EPILEPSY
     Dosage: 8 MG/KG/DAY, DOSE ESCALATION
     Route: 048
     Dates: start: 201511, end: 201605
  3. ZONEGRAN [Suspect]
     Active Substance: ZONISAMIDE
     Route: 048
     Dates: start: 201605, end: 201605
  4. ZONEGRAN [Suspect]
     Active Substance: ZONISAMIDE
     Route: 048
     Dates: end: 201605
  5. ZARONTIN [Concomitant]
     Active Substance: ETHOSUXIMIDE
     Indication: PRODUCT USED FOR UNKNOWN INDICATION
     Route: 048
     Dates: start: 201605

REACTIONS (4)
  - Decreased appetite [Recovering/Resolving]
  - Weight decreased [Recovering/Resolving]
  - Product use issue [Unknown]
  - Malnutrition [Recovering/Resolving]

NARRATIVE: CASE EVENT DATE: 201511
